FAERS Safety Report 15504837 (Version 1)
Quarter: 2018Q4

REPORT INFORMATION
  Report Type: Spontaneous
  Country: US (occurrence: US)
  Receive Date: 20181016
  Receipt Date: 20181016
  Transmission Date: 20190205
  Serious: No
  Sender: FDA-Public Use
  Company Number: US-SA-2018SA281720

PATIENT
  Sex: Female

DRUGS (1)
  1. GOLD BOND ULTIMATE DIABETICS [Suspect]
     Active Substance: DIMETHICONE\PETROLATUM
     Dosage: UNK

REACTIONS (1)
  - Therapeutic response decreased [Unknown]
